FAERS Safety Report 20006679 (Version 1)
Quarter: 2021Q4

REPORT INFORMATION
  Report Type: Spontaneous
  Country: US (occurrence: US)
  Receive Date: 20211028
  Receipt Date: 20211028
  Transmission Date: 20220303
  Serious: Yes (Hospitalization, Other)
  Sender: FDA-Public Use
  Company Number: US-APOTEX-2021AP044655

PATIENT
  Age: 52 Year
  Sex: Male

DRUGS (1)
  1. AMLODIPINE [Suspect]
     Active Substance: AMLODIPINE BESYLATE
     Indication: Product used for unknown indication
     Dosage: 750 MILLIGRAM
     Route: 065

REACTIONS (4)
  - Hypoxia [Recovered/Resolved]
  - Shock [Recovered/Resolved]
  - Acute respiratory distress syndrome [Recovered/Resolved]
  - Intentional overdose [Recovered/Resolved]
